FAERS Safety Report 18758517 (Version 2)
Quarter: 2021Q1

REPORT INFORMATION
  Report Type: Spontaneous
  Country: US (occurrence: US)
  Receive Date: 20210120
  Receipt Date: 20210129
  Transmission Date: 20210419
  Serious: Yes (Hospitalization, Other)
  Sender: FDA-Public Use
  Company Number: US-AUROBINDO-AUR-APL-2021-002205

PATIENT
  Age: 54 Year
  Sex: Male

DRUGS (1)
  1. METFORMIN [Suspect]
     Active Substance: METFORMIN HYDROCHLORIDE
     Indication: TYPE 2 DIABETES MELLITUS
     Dosage: UNK
     Route: 048

REACTIONS (8)
  - Acute kidney injury [Recovered/Resolved]
  - Acidosis [Unknown]
  - Drug level increased [Unknown]
  - Vomiting [Unknown]
  - Lethargy [Unknown]
  - Asthenia [Unknown]
  - Lactic acidosis [Unknown]
  - Nausea [Unknown]

NARRATIVE: CASE EVENT DATE: 201606
